FAERS Safety Report 16344159 (Version 2)
Quarter: 2019Q2

REPORT INFORMATION
  Report Type: Spontaneous
  Country: US (occurrence: US)
  Receive Date: 20190522
  Receipt Date: 20190625
  Transmission Date: 20190711
  Serious: Yes (Other)
  Sender: FDA-Public Use
  Company Number: US-PFIZER INC-2019179509

PATIENT
  Sex: Male

DRUGS (1)
  1. RAMIPRIL. [Suspect]
     Active Substance: RAMIPRIL
     Indication: CARDIAC FAILURE CONGESTIVE
     Dosage: 10 MG, 1X/DAY (ONCE A DAY IN EVENING)

REACTIONS (4)
  - Allergic reaction to excipient [Unknown]
  - Oropharyngeal pain [Unknown]
  - Throat tightness [Unknown]
  - Dyspnoea [Unknown]
